FAERS Safety Report 8890151 (Version 1)
Quarter: 2012Q4

REPORT INFORMATION
  Report Type: 
  Country: BR (occurrence: BR)
  Receive Date: 20121107
  Receipt Date: 20121107
  Transmission Date: 20130627
  Serious: Yes (Other)
  Sender: FDA-Public Use
  Company Number: BR-SANOFI-AVENTIS-2012SA080050

PATIENT
  Age: 33 Year
  Sex: Female
  Weight: 47 kg

DRUGS (3)
  1. LANTUS [Suspect]
     Indication: TYPE I DIABETES MELLITUS
     Route: 058
     Dates: start: 2005
  2. AUTOPEN 24 [Suspect]
     Indication: DEVICE THERAPY
  3. HYDROCHLOROTHIAZIDE/LOSARTAN POTASSIUM [Concomitant]
     Indication: BLOOD PRESSURE
     Route: 048

REACTIONS (2)
  - Retinal detachment [Unknown]
  - Blindness [Unknown]
